FAERS Safety Report 14868820 (Version 6)
Quarter: 2019Q4

REPORT INFORMATION
  Report Type: Spontaneous
  Country: US (occurrence: US)
  Receive Date: 20180509
  Receipt Date: 20191112
  Transmission Date: 20200122
  Serious: Yes (Other)
  Sender: FDA-Public Use
  Company Number: US-PFIZER INC-2017467030

PATIENT
  Age: 2 Year
  Sex: Male

DRUGS (9)
  1. GENOTROPIN MQ [Suspect]
     Active Substance: SOMATROPIN
     Indication: DEVELOPMENTAL HIP DYSPLASIA
     Dosage: 0.3 MG, 5 DAYS A WEEK
     Dates: start: 20170429
  2. GENOTROPIN MQ [Suspect]
     Active Substance: SOMATROPIN
     Dosage: 0.4 (FOR 3 DAYS A WEEK)
  3. GENOTROPIN MQ [Suspect]
     Active Substance: SOMATROPIN
     Dosage: UNK
     Dates: start: 20190408
  4. GENOTROPIN MQ [Suspect]
     Active Substance: SOMATROPIN
     Dosage: 0.4 MG, 5 DAYS PER WEEK
     Route: 058
  5. GENOTROPIN MQ [Suspect]
     Active Substance: SOMATROPIN
     Dosage: 1.2 MG, WEEKLY(0.4MG MINIQUICK, 3 DAYS A WEEK- MONDAY, WEDNESDAY AND FRIDAY)
     Dates: start: 201705
  6. GENOTROPIN MQ [Suspect]
     Active Substance: SOMATROPIN
     Indication: GROWTH HORMONE DEFICIENCY
     Dosage: 0.2 MG, DAILY
     Route: 058
     Dates: start: 201705
  7. GENOTROPIN MQ [Suspect]
     Active Substance: SOMATROPIN
     Dosage: 0.4 MG, 5 DAYS PER WEEK
     Dates: start: 201705, end: 201803
  8. GENOTROPIN MQ [Suspect]
     Active Substance: SOMATROPIN
     Indication: PRADER-WILLI SYNDROME
     Dosage: 0.4 MG, ONCE A DAY FIVE DAYS A WEEK
     Route: 058
  9. GENOTROPIN MQ [Suspect]
     Active Substance: SOMATROPIN
     Dosage: UNK

REACTIONS (7)
  - Product prescribing error [Unknown]
  - Pyrexia [Unknown]
  - Sleep apnoea syndrome [Unknown]
  - Increased appetite [Unknown]
  - Febrile convulsion [Unknown]
  - Product dose omission [Unknown]
  - Gait disturbance [Unknown]

NARRATIVE: CASE EVENT DATE: 201803
